FAERS Safety Report 9754674 (Version 2)
Quarter: 2014Q1

REPORT INFORMATION
  Report Type: Spontaneous
  Country: JP (occurrence: JP)
  Receive Date: 20131213
  Receipt Date: 20140107
  Transmission Date: 20141002
  Serious: Yes (Other)
  Sender: FDA-Public Use
  Company Number: JP-PFIZER INC-2013355778

PATIENT
  Age: 59 Year
  Sex: Female

DRUGS (3)
  1. SAVETENS [Suspect]
     Dosage: 12.5 MG (25MG TABLET WAS DIVIDED INTO HALVES), DAILY
     Route: 048
     Dates: start: 20131121
  2. ADALAT CR [Concomitant]
  3. RIZE [Concomitant]

REACTIONS (2)
  - Hypothermia [Unknown]
  - Nasopharyngitis [Unknown]
